FAERS Safety Report 8553019-3 (Version None)
Quarter: 2012Q3

REPORT INFORMATION
  Report Type: 
  Country: None (occurrence: None)
  Receive Date: 20120731
  Receipt Date: 20120725
  Transmission Date: 20120928
  Serious: Yes (Other)
  Sender: FDA-Public Use
  Company Number: US-SANOFI-AVENTIS-2012SA053083

PATIENT
  Sex: Female

DRUGS (3)
  1. LOVENOX [Suspect]
     Indication: PULMONARY EMBOLISM
  2. COUMADIN [Suspect]
  3. COUMADIN [Suspect]
     Indication: PULMONARY EMBOLISM

REACTIONS (2)
  - INTERNATIONAL NORMALISED RATIO INCREASED [None]
  - MATERNAL EXPOSURE DURING PREGNANCY [None]
